FAERS Safety Report 5149407-8 (Version None)
Quarter: 2006Q4

REPORT INFORMATION
  Report Type: 
  Country: None (occurrence: None)
  Receive Date: 20061113
  Receipt Date: 20051230
  Transmission Date: 20070319
  Serious: No
  Sender: FDA-Public Use
  Company Number: 430687

PATIENT
  Sex: Male

DRUGS (3)
  1. COREG [Suspect]
     Dosage: 6.5MG TWICE PER DAY
     Route: 048
     Dates: start: 20041101
  2. SYNTHROID [Concomitant]
  3. VITAMINS [Concomitant]

REACTIONS (1)
  - SLEEP APNOEA SYNDROME [None]
